FAERS Safety Report 12981972 (Version 1)
Quarter: 2016Q4

REPORT INFORMATION
  Report Type: Spontaneous
  Country: AT (occurrence: AT)
  Receive Date: 20161129
  Receipt Date: 20161129
  Transmission Date: 20170207
  Serious: Yes (Hospitalization)
  Sender: FDA-Public Use
  Company Number: AT-MUNDIPHARMA DS AND PHARMACOVIGILANCE-DEU-2016-0018412

PATIENT
  Age: 28 Year
  Sex: Female

DRUGS (5)
  1. SUBSTITOL [Suspect]
     Active Substance: MORPHINE SULFATE
     Indication: DRUG WITHDRAWAL MAINTENANCE THERAPY
     Dosage: UNK
     Route: 042
     Dates: start: 201607
  2. SUBSTITOL [Suspect]
     Active Substance: MORPHINE SULFATE
     Dosage: UNK
     Route: 065
  3. SUBSTITOL [Suspect]
     Active Substance: MORPHINE SULFATE
     Dosage: 200 MG, QID
     Route: 065
  4. PRAXITEN [Concomitant]
     Active Substance: OXAZEPAM
     Indication: DRUG WITHDRAWAL MAINTENANCE THERAPY
     Dosage: 50 MG, 5/DAY
     Route: 065
  5. COCAINE [Suspect]
     Active Substance: COCAINE
     Indication: PRODUCT USED FOR UNKNOWN INDICATION
     Dosage: UNK
     Route: 042

REACTIONS (2)
  - Injection site cellulitis [Recovered/Resolved]
  - Drug abuse [Unknown]

NARRATIVE: CASE EVENT DATE: 201607
